FAERS Safety Report 14508090 (Version 2)
Quarter: 2018Q1

REPORT INFORMATION
  Report Type: Report from Study
  Country: US (occurrence: US)
  Receive Date: 20180208
  Receipt Date: 20180219
  Transmission Date: 20180509
  Serious: No
  Sender: FDA-Public Use
  Company Number: US-AMGEN-USASL2018017618

PATIENT
  Sex: Female
  Weight: 42.18 kg

DRUGS (2)
  1. ENBREL [Suspect]
     Active Substance: ETANERCEPT
     Indication: ANKYLOSING SPONDYLITIS
     Dosage: 50 MG, QWK
     Route: 065
     Dates: start: 20171109, end: 20180103
  2. ENBREL [Suspect]
     Active Substance: ETANERCEPT
     Indication: ARTHRITIS

REACTIONS (6)
  - Accidental exposure to product [Unknown]
  - Off label use [Unknown]
  - Wrong technique in product usage process [Unknown]
  - Adverse event [Unknown]
  - Drug dose omission [Unknown]
  - Injection site haemorrhage [Unknown]
